FAERS Safety Report 14816419 (Version 1)
Quarter: 2018Q2

REPORT INFORMATION
  Report Type: Spontaneous
  Country: US (occurrence: US)
  Receive Date: 20180426
  Receipt Date: 20180426
  Transmission Date: 20180711
  Serious: Yes (Other)
  Sender: FDA-Public Use
  Company Number: US-JNJFOC-20180431773

PATIENT

DRUGS (10)
  1. TOPIRAMATE. [Suspect]
     Active Substance: TOPIRAMATE
     Indication: EPILEPSY
     Dosage: PARENT DOSING: +#8804;100 AND }100 MG
     Route: 064
  2. TOPIRAMATE. [Suspect]
     Active Substance: TOPIRAMATE
     Indication: MIGRAINE
     Dosage: PARENT DOSING: +#8804;100 AND }100 MG
     Route: 064
  3. TOPIRAMATE. [Suspect]
     Active Substance: TOPIRAMATE
     Indication: HEADACHE
     Dosage: PARENT DOSING: +#8804;100 AND }100 MG
     Route: 064
  4. INSULIN [Concomitant]
     Active Substance: INSULIN NOS
     Route: 064
  5. CARBAMAZEPINE. [Concomitant]
     Active Substance: CARBAMAZEPINE
     Route: 064
  6. TOPIRAMATE. [Suspect]
     Active Substance: TOPIRAMATE
     Indication: BIPOLAR DISORDER
     Dosage: PARENT DOSING: +#8804;100 AND }100 MG
     Route: 064
  7. PHENYTOIN. [Concomitant]
     Active Substance: PHENYTOIN
     Route: 064
  8. TOPIRAMATE. [Suspect]
     Active Substance: TOPIRAMATE
     Indication: SEIZURE
     Dosage: PARENT DOSING: +#8804;100 AND }100 MG
     Route: 064
  9. TOPIRAMATE. [Suspect]
     Active Substance: TOPIRAMATE
     Indication: NEURALGIA
     Dosage: PARENT DOSING: +#8804;100 AND }100 MG
     Route: 064
  10. VALPROATE [Concomitant]
     Active Substance: VALPROIC ACID
     Route: 064

REACTIONS (2)
  - Foetal exposure during pregnancy [Recovered/Resolved]
  - Cleft lip and palate [Unknown]
